FAERS Safety Report 17061969 (Version 1)
Quarter: 2019Q4

REPORT INFORMATION
  Report Type: Spontaneous
  Country: CN (occurrence: CN)
  Receive Date: 20191121
  Receipt Date: 20191121
  Transmission Date: 20200122
  Serious: Yes (Hospitalization)
  Sender: FDA-Public Use
  Company Number: CN-BAXTER-2019BAX023551

PATIENT
  Age: 63 Year
  Sex: Male
  Weight: 60 kg

DRUGS (13)
  1. ENDOXAN [Suspect]
     Active Substance: CYCLOPHOSPHAMIDE
     Dosage: DOSE RE-INTRODUCED, CYCLOPHOSPHAMIDE + 0.9% NS.
     Route: 042
  2. STERILE WATER FOR INJECTION [Suspect]
     Active Substance: WATER
     Dosage: DOSE RE-INTRODUCED, EPIRUBICIN + WATER FOR INJECTION
     Route: 042
  3. 0.9% SODIUM CHLORIDE INJECTION [Suspect]
     Active Substance: SODIUM CHLORIDE
     Dosage: DOSE RE-INTRODUCED, VINDESINE + 0.9% NS
     Route: 041
  4. VINDESINE [Suspect]
     Active Substance: VINDESINE
     Dosage: DOSE REINTRODUCED, VINDESINE + 0.9% NS
     Route: 041
  5. 0.9% SODIUM CHLORIDE INJECTION [Suspect]
     Active Substance: SODIUM CHLORIDE
     Dosage: DOSE RE-INTRODUCED, CYCLOPHOSPHAMIDE + 0.9% NS
     Route: 042
  6. VINDESINE [Suspect]
     Active Substance: VINDESINE
     Indication: LYMPHOMA
     Dosage: VINDESINE 3 MG + 0.9% NS 40ML, DAY 1
     Route: 041
     Dates: start: 20190904, end: 20190904
  7. 0.9% SODIUM CHLORIDE INJECTION [Suspect]
     Active Substance: SODIUM CHLORIDE
     Indication: MEDICATION DILUTION
     Dosage: CYCLOPHOSPHAMIDE 1G + 0.9% NS 80ML, DAY 1
     Route: 042
     Dates: start: 20190904, end: 20190904
  8. TELJIN [Concomitant]
     Indication: PROPHYLAXIS
     Route: 058
     Dates: start: 20190911
  9. ENDOXAN [Suspect]
     Active Substance: CYCLOPHOSPHAMIDE
     Indication: LYMPHOMA
     Dosage: CYCLOPHOSPHAMIDE 1G + 0.9% NS 80ML, DAY 1
     Route: 042
     Dates: start: 20190904, end: 20190904
  10. 0.9% SODIUM CHLORIDE INJECTION [Suspect]
     Active Substance: SODIUM CHLORIDE
     Dosage: VINDESINE 3 MG + 0.9% NS 40ML, DAY 1
     Route: 041
     Dates: start: 20190904, end: 20190904
  11. STERILE WATER FOR INJECTION [Suspect]
     Active Substance: WATER
     Indication: MEDICATION DILUTION
     Dosage: EPIRUBICIN 40 MG + WATER FOR INJECTION 40ML, DAY 1-2.
     Route: 042
     Dates: start: 20190904, end: 20190905
  12. EPIRUBICIN HYDROCHLORIDE. [Suspect]
     Active Substance: EPIRUBICIN HYDROCHLORIDE
     Indication: LYMPHOMA
     Dosage: EPIRUBICIN 40 MG + WATER FOR INJECTION 40ML, DAY 1-2.
     Route: 042
     Dates: start: 20190904, end: 20190905
  13. EPIRUBICIN HYDROCHLORIDE. [Suspect]
     Active Substance: EPIRUBICIN HYDROCHLORIDE
     Dosage: DOSE RE-INTRODUCED, EPIRUBICIN + WATER FOR INJECTION
     Route: 042

REACTIONS (1)
  - Bone marrow failure [Recovering/Resolving]

NARRATIVE: CASE EVENT DATE: 20190912
